FAERS Safety Report 13156609 (Version 17)
Quarter: 2019Q4

REPORT INFORMATION
  Report Type: Spontaneous
  Country: US (occurrence: US)
  Receive Date: 20170126
  Receipt Date: 20191127
  Transmission Date: 20200122
  Serious: Yes (Death, Hospitalization, Other)
  Sender: FDA-Public Use
  Company Number: US-ACTELION-A-US2017-149072

PATIENT
  Age: 65 Year
  Sex: Female
  Weight: 61.68 kg

DRUGS (7)
  1. OPSUMIT [Suspect]
     Active Substance: MACITENTAN
     Indication: PULMONARY ARTERIAL HYPERTENSION
     Dosage: 10 MG, QD
     Route: 048
     Dates: start: 20161229
  2. SILDENAFIL CITRATE. [Concomitant]
     Active Substance: SILDENAFIL CITRATE
  3. VELETRI [Suspect]
     Active Substance: EPOPROSTENOL
     Dosage: 24 NG/KG, PER MIN
     Route: 042
  4. VELETRI [Suspect]
     Active Substance: EPOPROSTENOL
     Dosage: 23 NG/KG, PER MIN
     Route: 042
     Dates: start: 20161017
  5. ELIQUIS [Concomitant]
     Active Substance: APIXABAN
     Dosage: 10 MG, BID
  6. VELETRI [Suspect]
     Active Substance: EPOPROSTENOL
     Indication: PULMONARY ARTERIAL HYPERTENSION
     Dosage: 22 NG/KG, PER MIN
     Route: 042
  7. REVATIO [Concomitant]
     Active Substance: SILDENAFIL CITRATE

REACTIONS (34)
  - Pulmonary congestion [Unknown]
  - Anaemia [Recovered/Resolved]
  - Weight decreased [Unknown]
  - Dyspnoea [Recovered/Resolved]
  - Hospitalisation [Unknown]
  - Muscle strain [Unknown]
  - Haemoglobin decreased [Recovered/Resolved]
  - Fall [Unknown]
  - Oedema [Unknown]
  - Device breakage [Recovered/Resolved]
  - Pulmonary arterial hypertension [Not Recovered/Not Resolved]
  - Intestinal polyp [Unknown]
  - Rash [Unknown]
  - Rash macular [Not Recovered/Not Resolved]
  - Dyspnoea exertional [Unknown]
  - Death [Fatal]
  - Oxygen saturation decreased [Unknown]
  - Erosive oesophagitis [Unknown]
  - Oedema mucosal [Unknown]
  - Peripheral swelling [Unknown]
  - Arthralgia [Unknown]
  - Gastrointestinal polyp haemorrhage [Unknown]
  - Nasal congestion [Not Recovered/Not Resolved]
  - Therapy non-responder [Not Recovered/Not Resolved]
  - Palpitations [Unknown]
  - Dyspnoea at rest [Unknown]
  - Internal haemorrhage [Unknown]
  - Transfusion [Unknown]
  - Fatigue [Recovered/Resolved]
  - Hip fracture [Unknown]
  - Asthenia [Recovered/Resolved]
  - Swelling [Unknown]
  - Oropharyngeal pain [Unknown]
  - Nausea [Unknown]

NARRATIVE: CASE EVENT DATE: 20170101
